FAERS Safety Report 20430543 (Version 1)
Quarter: 2022Q1

REPORT INFORMATION
  Report Type: Report from Study
  Country: FR (occurrence: FR)
  Receive Date: 20220204
  Receipt Date: 20220204
  Transmission Date: 20220423
  Serious: Yes (Other)
  Sender: FDA-Public Use
  Company Number: FR-SERVIER-S20010503

PATIENT

DRUGS (7)
  1. PEGASPARGASE [Suspect]
     Active Substance: PEGASPARGASE
     Indication: Acute lymphocytic leukaemia
     Dosage: 640 IU, QD
     Route: 042
     Dates: start: 20190125, end: 20190208
  2. VINCRISTINE SULFATE [Suspect]
     Active Substance: VINCRISTINE SULFATE
     Indication: Acute lymphocytic leukaemia
     Dosage: 0.8 MG, D8, D15, D22, D29
     Route: 042
     Dates: start: 20190121, end: 20190211
  3. DAUNORUBICIN HYDROCHLORIDE [Suspect]
     Active Substance: DAUNORUBICIN HYDROCHLORIDE
     Indication: Acute lymphocytic leukaemia
     Dosage: 15 MG, D8, D15, D22, D29
     Route: 042
     Dates: start: 20190121, end: 20190211
  4. PREDNISOLONE [Suspect]
     Active Substance: PREDNISOLONE
     Indication: Acute lymphocytic leukaemia
     Dosage: 30 MG, D8 TO D28
     Route: 048
     Dates: start: 20190121, end: 20190210
  5. TN UNSPECIFIED [Concomitant]
     Indication: Acute lymphocytic leukaemia
     Dosage: 10 MG, D9, D13, D18
     Route: 037
     Dates: start: 20190122, end: 20190131
  6. TN UNSPECIFIED [Concomitant]
     Indication: Acute lymphocytic leukaemia
     Dosage: 25 MG, D9, D13, D18
     Route: 037
     Dates: start: 20190122, end: 20190131
  7. TN UNSPECIFIED [Concomitant]
     Indication: Acute lymphocytic leukaemia
     Dosage: 12.5 MG, D9, D13, D18
     Route: 037
     Dates: start: 20190122, end: 20190131

REACTIONS (3)
  - Palatal ulcer [Recovered/Resolved]
  - Anal erythema [Recovered/Resolved]
  - Oedematous pancreatitis [Recovered/Resolved]

NARRATIVE: CASE EVENT DATE: 20190209
